FAERS Safety Report 21457413 (Version 2)
Quarter: 2022Q4

REPORT INFORMATION
  Report Type: Spontaneous
  Country: US (occurrence: US)
  Receive Date: 20221014
  Receipt Date: 20221102
  Transmission Date: 20230113
  Serious: No
  Sender: FDA-Public Use
  Company Number: US-JNJFOC-20221014997

PATIENT
  Age: 84 Year
  Sex: Male
  Weight: 97 kg

DRUGS (7)
  1. ERLEADA [Suspect]
     Active Substance: APALUTAMIDE
     Indication: Prostate cancer
     Route: 048
     Dates: start: 20220909
  2. ERLEADA [Suspect]
     Active Substance: APALUTAMIDE
     Route: 048
  3. CIALIS [Interacting]
     Active Substance: TADALAFIL
     Indication: Product used for unknown indication
     Route: 065
  4. TRAZODONE [Interacting]
     Active Substance: TRAZODONE HYDROCHLORIDE
     Indication: Product used for unknown indication
     Route: 065
  5. NP THYROID [Concomitant]
     Active Substance: LEVOTHYROXINE\LIOTHYRONINE
  6. JANTOVEN [Concomitant]
     Active Substance: WARFARIN SODIUM
     Indication: Anticoagulant therapy
  7. FIRMAGON [Concomitant]
     Active Substance: DEGARELIX ACETATE

REACTIONS (7)
  - Dysgeusia [Unknown]
  - Drug interaction [Unknown]
  - International normalised ratio [Unknown]
  - Hyperhidrosis [Unknown]
  - Hot flush [Unknown]
  - Asthenia [Unknown]
  - Thyroid disorder [Unknown]
